FAERS Safety Report 4801151-X (Version None)
Quarter: 2005Q4

REPORT INFORMATION
  Report Type: 
  Country: None (occurrence: None)
  Receive Date: 20051017
  Receipt Date: 20050826
  Transmission Date: 20060501
  Serious: Yes (Other)
  Sender: FDA-Public Use
  Company Number: PHBS2005IE12600

PATIENT
  Age: 77 Year
  Sex: Male

DRUGS (13)
  1. ZOMETA [Suspect]
     Indication: MULTIPLE MYELOMA
     Dosage: 4 MG, QMO
     Route: 042
     Dates: start: 20031104, end: 20050720
  2. CYCLOPHOSPHAMIDE [Concomitant]
     Dosage: 500 MG/D
     Route: 065
     Dates: start: 20040630, end: 20040701
  3. THALIDOMIDE [Concomitant]
     Dosage: 50 TO 200 MG/D
     Route: 065
     Dates: start: 20040630, end: 20040701
  4. DEXAMETHASONE [Concomitant]
     Dosage: 40 MG DAY 1-4, 9-12, 17-20
     Route: 065
  5. TRITACE [Concomitant]
     Dosage: 5 MG/D
     Route: 048
  6. BUMETANIDE [Concomitant]
     Dosage: 1.5 MG/D
     Route: 048
  7. EUCARDIC [Concomitant]
     Dosage: 3.125 MG/D
     Route: 048
  8. ALDACTONE [Concomitant]
     Dosage: 25 MG/D
     Route: 048
  9. LIPOSTAT 10% [Concomitant]
     Dosage: 20 MG/D
     Route: 048
  10. MYCOSTATIN [Concomitant]
     Dosage: 1 ML/D
     Route: 048
  11. GALFEC [Concomitant]
     Route: 065
  12. ASPIRIN [Concomitant]
     Route: 065
  13. PLAVIX [Concomitant]
     Route: 065

REACTIONS (7)
  - BONE TRIMMING [None]
  - DENTAL OPERATION [None]
  - IMPAIRED HEALING [None]
  - JAW DISORDER [None]
  - OSTEOMYELITIS [None]
  - OSTEONECROSIS [None]
  - TOOTH EXTRACTION [None]
